FAERS Safety Report 17628892 (Version 2)
Quarter: 2020Q4

REPORT INFORMATION
  Report Type: Spontaneous
  Country: US (occurrence: US)
  Receive Date: 20200406
  Receipt Date: 20201224
  Transmission Date: 20210113
  Serious: No
  Sender: FDA-Public Use
  Company Number: US-GLAXOSMITHKLINE-US2020AMR058924

PATIENT
  Sex: Male

DRUGS (2)
  1. NUCALA [Suspect]
     Active Substance: MEPOLIZUMAB
     Indication: PULMONARY VASCULITIS
     Dosage: 100 MG 3 TIMES MONTHLY
     Route: 065
     Dates: start: 2017, end: 202009
  2. NUCALA [Suspect]
     Active Substance: MEPOLIZUMAB
     Indication: ASTHMA
     Dosage: UNK UNK, CYC (EVERY 28 DAYS)
     Route: 065

REACTIONS (7)
  - Product use in unapproved indication [Unknown]
  - Malaise [Unknown]
  - Incorrect product administration duration [Unknown]
  - Headache [Unknown]
  - Fatigue [Unknown]
  - Symptom recurrence [Unknown]
  - Product dose omission issue [Unknown]
